FAERS Safety Report 7629253-3 (Version None)
Quarter: 2011Q3

REPORT INFORMATION
  Report Type: 
  Country: None (occurrence: None)
  Receive Date: 20110722
  Receipt Date: 20110715
  Transmission Date: 20111222
  Serious: Yes (Hospitalization, Other)
  Sender: FDA-Public Use
  Company Number: US-SANOFI-AVENTIS-2011SA045825

PATIENT
  Age: 54 Year
  Sex: Male
  Weight: 76.2 kg

DRUGS (8)
  1. ALTACE [Concomitant]
     Indication: CARDIAC DISORDER
  2. LYRICA [Suspect]
     Route: 048
  3. LASIX [Suspect]
     Route: 048
  4. LISINOPRIL [Suspect]
     Indication: CARDIAC DISORDER
     Route: 065
  5. CYMBALTA [Concomitant]
  6. LYRICA [Suspect]
     Route: 048
     Dates: start: 20090101
  7. LASIX [Suspect]
     Route: 048
  8. NEURONTIN [Suspect]
     Route: 065
     Dates: start: 20040101, end: 20090101

REACTIONS (8)
  - BLOOD POTASSIUM ABNORMAL [None]
  - CARDIAC FAILURE CONGESTIVE [None]
  - WEIGHT INCREASED [None]
  - CEREBROVASCULAR ACCIDENT [None]
  - FLUID OVERLOAD [None]
  - BLOOD PRESSURE INCREASED [None]
  - BLOOD PRESSURE DECREASED [None]
  - BLOOD SODIUM DECREASED [None]
